FAERS Safety Report 4531835-2 (Version None)
Quarter: 2004Q4

REPORT INFORMATION
  Report Type: 
  Country: None (occurrence: None)
  Receive Date: 20041220
  Receipt Date: 20041118
  Transmission Date: 20050328
  Serious: Yes (Hospitalization, Disabling)
  Sender: FDA-Public Use
  Company Number: US-MERCK-0411USA03146

PATIENT
  Age: 55 Year
  Sex: Male

DRUGS (9)
  1. VIOXX [Suspect]
     Indication: PAIN
     Route: 048
     Dates: start: 20010423
  2. VIOXX [Suspect]
     Route: 048
     Dates: start: 20020416, end: 20020423
  3. DARVOCET-N 100 [Concomitant]
     Route: 065
  4. DIOVAN [Concomitant]
     Route: 065
  5. HYDROCHLOROTHIAZIDE [Concomitant]
     Route: 065
  6. ATENOLOL [Concomitant]
     Route: 065
  7. NAPROSYN [Concomitant]
     Route: 065
  8. FLEXERIL [Concomitant]
     Route: 048
  9. CELEBREX [Concomitant]
     Route: 065
     Dates: start: 20010101, end: 20010309

REACTIONS (9)
  - ARTERIAL BYPASS OPERATION [None]
  - DIFFICULTY IN WALKING [None]
  - DRUG INEFFECTIVE [None]
  - HYPOAESTHESIA [None]
  - IMPAIRED WORK ABILITY [None]
  - OBSTRUCTION [None]
  - PAIN IN EXTREMITY [None]
  - PERIPHERAL VASCULAR DISORDER [None]
  - PLANTAR FASCIITIS [None]
